FAERS Safety Report 8408306-6 (Version None)
Quarter: 2012Q2

REPORT INFORMATION
  Report Type: 
  Country: None (occurrence: None)
  Receive Date: 20120323
  Receipt Date: 20111222
  Transmission Date: 20120825
  Serious: Yes (Hospitalization)
  Sender: FDA-Public Use
  Company Number: 163-21880-11114199

PATIENT
  Age: 63 Year
  Sex: Female

DRUGS (2)
  1. REVLIMID [Suspect]
     Indication: MULTIPLE MYELOMA
     Dosage: 10 MG, 1 IN 1 D, PO ; 10 MG, DAILY FOR 21D ON FOLLOWED BY 7D OFF, PO
     Route: 048
     Dates: start: 20110601
  2. REVLIMID [Suspect]
     Indication: MULTIPLE MYELOMA
     Dosage: 10 MG, 1 IN 1 D, PO ; 10 MG, DAILY FOR 21D ON FOLLOWED BY 7D OFF, PO
     Route: 048
     Dates: start: 20111128

REACTIONS (1)
  - PNEUMONIA [None]
